FAERS Safety Report 5123757-3 (Version None)
Quarter: 2006Q4

REPORT INFORMATION
  Report Type: 
  Country: None (occurrence: None)
  Receive Date: 20061010
  Receipt Date: 20060418
  Transmission Date: 20070319
  Serious: Yes (Life-Threatening, Hospitalization, Disabling)
  Sender: FDA-Public Use
  Company Number: DE-ROCHE-444570

PATIENT
  Age: 72 Year
  Sex: Male
  Weight: 75 kg

DRUGS (12)
  1. MYCOPHENOLATE MOFETIL [Suspect]
     Route: 048
     Dates: start: 20051122, end: 20060329
  2. FLUTICASON 17-PROPIONAT [Concomitant]
     Indication: ASTHMA
     Dosage: TOTAL DAILY DOSE REPORTED AS 1MG.
     Route: 055
  3. VITAMIN D [Concomitant]
     Indication: OSTEOPOROSIS PROPHYLAXIS
     Dosage: UNITS: IE.
     Route: 048
     Dates: start: 20051111
  4. CALCIUM GLUCONATE [Concomitant]
     Indication: OSTEOPOROSIS PROPHYLAXIS
     Route: 048
     Dates: start: 20051111
  5. PANTOPRAZOL [Concomitant]
     Indication: PROPHYLAXIS
     Route: 048
     Dates: start: 20051111
  6. DICLOFENAC SODIUM [Concomitant]
     Route: 048
     Dates: start: 20060314, end: 20060314
  7. BISOPROLOL FUMARATE [Concomitant]
     Indication: HYPERTENSION
     Route: 048
  8. RAMIPRIL [Concomitant]
     Indication: HYPERTENSION
     Route: 048
  9. THEOPHYLLINE [Concomitant]
     Indication: ASTHMA
     Route: 048
  10. BAMBUTEROL [Concomitant]
     Indication: ASTHMA
     Route: 048
  11. ASPIRIN [Concomitant]
     Dosage: INDICATION REPORTED AS: INHIBITION OF THROMBOCYTIC AGGREGATION.
     Route: 048
  12. FENOTEROL HYDROBROMIDE [Concomitant]
     Indication: ASTHMA
     Dosage: TOTAL DAILY DOSE REPORTED AS 400MCG.
     Route: 055

REACTIONS (5)
  - CEREBRAL INFARCTION [None]
  - CEREBROVASCULAR ACCIDENT [None]
  - HEADACHE [None]
  - PNEUMONIA [None]
  - QUADRIPLEGIA [None]
